FAERS Safety Report 5778316-6 (Version None)
Quarter: 2008Q2

REPORT INFORMATION
  Report Type: 
  Country: None (occurrence: None)
  Receive Date: 20080616
  Receipt Date: 20080123
  Transmission Date: 20081010
  Serious: Yes (Hospitalization)
  Sender: FDA-Public Use
  Company Number: WAES 0802USA01233

PATIENT
  Age: 80 Year
  Sex: Female

DRUGS (3)
  1. COZAAR [Suspect]
     Indication: BLOOD PRESSURE
     Dosage: 50 MG/DAILY/PO; 100 MG/DAILY/PO; 50 MG/DAILY/PO
     Route: 048
     Dates: start: 19960101
  2. LANTUS [Concomitant]
  3. ASPIRIN [Concomitant]

REACTIONS (5)
  - ALOPECIA [None]
  - BLOOD GLUCOSE INCREASED [None]
  - BLOOD PRESSURE INADEQUATELY CONTROLLED [None]
  - DRUG INTERACTION [None]
  - MYOCARDIAL INFARCTION [None]
